FAERS Safety Report 10766737 (Version 2)
Quarter: 2015Q1

REPORT INFORMATION
  Report Type: Report from Study
  Country: AT (occurrence: AT)
  Receive Date: 20150205
  Receipt Date: 20150226
  Transmission Date: 20150721
  Serious: Yes (Hospitalization, Other)
  Sender: FDA-Public Use
  Company Number: PHHY2013AT134120

PATIENT

DRUGS (3)
  1. STI571 [Suspect]
     Active Substance: IMATINIB MESYLATE
     Dosage: UNK
     Route: 065
     Dates: start: 20140610
  2. STI571 [Suspect]
     Active Substance: IMATINIB MESYLATE
     Dosage: UNK
     Route: 065
     Dates: end: 201411
  3. STI571 [Suspect]
     Active Substance: IMATINIB MESYLATE
     Indication: CHRONIC MYELOID LEUKAEMIA
     Dosage: 400 MG, UNK
     Route: 065

REACTIONS (17)
  - Musculoskeletal disorder [Unknown]
  - Fatigue [Unknown]
  - Ascites [Unknown]
  - Pancreatitis [Recovering/Resolving]
  - Cholangitis [Unknown]
  - Productive cough [Unknown]
  - Acute coronary syndrome [Unknown]
  - Gingival bleeding [Unknown]
  - Muscle spasms [Unknown]
  - Coronary artery disease [Unknown]
  - Pain [Unknown]
  - Intermittent claudication [Unknown]
  - Oedema peripheral [Unknown]
  - Hypertension [Unknown]
  - Diarrhoea [Unknown]
  - Dyslipidaemia [Unknown]
  - Influenza like illness [Unknown]

NARRATIVE: CASE EVENT DATE: 201409
